FAERS Safety Report 5702094-X (Version None)
Quarter: 2008Q2

REPORT INFORMATION
  Report Type: 
  Country: None (occurrence: None)
  Receive Date: 20080411
  Receipt Date: 20070813
  Transmission Date: 20081010
  Serious: No
  Sender: FDA-Public Use
  Company Number: US-ABBOTT-07P-163-0377784-00

PATIENT
  Sex: Male
  Weight: 112.3 kg

DRUGS (1)
  1. DEPAKOTE [Suspect]
     Indication: BIPOLAR DISORDER
     Dosage: 5 TABLETS PER DAY
     Route: 048
     Dates: start: 20070701

REACTIONS (1)
  - MEDICATION RESIDUE [None]
